FAERS Safety Report 24800434 (Version 3)
Quarter: 2025Q2

REPORT INFORMATION
  Report Type: Report from Study
  Country: CA (occurrence: CA)
  Receive Date: 20250102
  Receipt Date: 20250615
  Transmission Date: 20250716
  Serious: Yes (Hospitalization)
  Sender: GLAXOSMITHKLINE
  Company Number: CA-GLAXOSMITHKLINE INC-CA2024165056

PATIENT
  Age: 43 Year
  Sex: Male
  Weight: 110 kg

DRUGS (18)
  1. BELIMUMAB [Suspect]
     Active Substance: BELIMUMAB
     Indication: Lupus nephritis
     Dosage: 990 MG, Q4W
  2. BELIMUMAB [Suspect]
     Active Substance: BELIMUMAB
     Dosage: 10 MG/KG, Q4W
  3. HYDROXYCHLOROQUINE [Concomitant]
     Active Substance: HYDROXYCHLOROQUINE
     Indication: Product used for unknown indication
     Dosage: 400 MG, QD
  4. MYCOPHENOLIC ACID [Concomitant]
     Active Substance: MYCOPHENOLIC ACID
     Indication: Product used for unknown indication
     Dosage: UNK, BID 1.5G AM AND 1G PM
  5. PREDNISONE [Concomitant]
     Active Substance: PREDNISONE
     Indication: Product used for unknown indication
     Dosage: 60 MG, QD
  6. PREDNISONE [Concomitant]
     Active Substance: PREDNISONE
     Dosage: 5 MG, QD
  7. AMLODIPINE [Concomitant]
     Active Substance: AMLODIPINE BESYLATE
     Indication: Product used for unknown indication
     Dosage: 10 MG, QD
  8. CARVEDILOL [Concomitant]
     Active Substance: CARVEDILOL
     Indication: Product used for unknown indication
     Dosage: 6.25 MG, BID
  9. DARBEPOETIN ALFA [Concomitant]
     Active Substance: DARBEPOETIN ALFA
     Indication: Product used for unknown indication
     Dosage: 40 UG, Q2W
  10. FUROSEMIDE [Concomitant]
     Active Substance: FUROSEMIDE
     Indication: Product used for unknown indication
     Dosage: 120 MG, BID
  11. INDAPAMIDE [Concomitant]
     Active Substance: INDAPAMIDE
     Indication: Product used for unknown indication
     Dosage: 1.25 UG, QD
  12. PANTOPRAZOLE [Concomitant]
     Active Substance: PANTOPRAZOLE
     Indication: Product used for unknown indication
     Dosage: 40 MG, QD
  13. SODIUM BICARBONATE [Concomitant]
     Active Substance: SODIUM BICARBONATE
     Indication: Product used for unknown indication
     Dosage: 500 MG, TID
  14. SULFAMETHOXAZOLE [Concomitant]
     Active Substance: SULFAMETHOXAZOLE
     Indication: Product used for unknown indication
  15. TRIMETHOPRIM [Concomitant]
     Active Substance: TRIMETHOPRIM
     Indication: Product used for unknown indication
  16. VITAMIN D3 [Concomitant]
     Active Substance: CHOLECALCIFEROL
     Indication: Product used for unknown indication
     Dosage: UNK, QD,1000 UNITS DAILY
  17. CELLCEPT [Concomitant]
     Active Substance: MYCOPHENOLATE MOFETIL
     Indication: Product used for unknown indication
     Dosage: 2 MG, QD
  18. HYDROXYCHLOROQUINE [Concomitant]
     Active Substance: HYDROXYCHLOROQUINE
     Indication: Product used for unknown indication

REACTIONS (3)
  - Hip arthroplasty [Recovered/Resolved]
  - Intentional dose omission [Unknown]
  - Inappropriate schedule of product administration [Unknown]

NARRATIVE: CASE EVENT DATE: 20241128
